FAERS Safety Report 16645650 (Version 2)
Quarter: 2019Q3

REPORT INFORMATION
  Report Type: Spontaneous
  Country: CO (occurrence: CO)
  Receive Date: 20190730
  Receipt Date: 20190905
  Transmission Date: 20191004
  Serious: Yes (Hospitalization, Other)
  Sender: FDA-Public Use
  Company Number: CO-AMGEN-COLSP2019121250

PATIENT
  Age: 70 Year
  Sex: Male

DRUGS (2)
  1. METHOTREXATE. [Concomitant]
     Active Substance: METHOTREXATE
     Dosage: UNK
  2. ENBREL [Suspect]
     Active Substance: ETANERCEPT
     Indication: PRODUCT USED FOR UNKNOWN INDICATION
     Dosage: 50 MG, WEEKLY
     Route: 058
     Dates: start: 2015, end: 201808

REACTIONS (3)
  - Visual impairment [Recovered/Resolved]
  - Cataract [Recovered/Resolved]
  - Cardiac disorder [Recovered/Resolved]

NARRATIVE: CASE EVENT DATE: 201808
